FAERS Safety Report 5398046-2 (Version None)
Quarter: 2007Q3

REPORT INFORMATION
  Report Type: 
  Country: None (occurrence: None)
  Receive Date: 20070724
  Receipt Date: 20070711
  Transmission Date: 20080115
  Serious: Yes (Death)
  Sender: FDA-Public Use
  Company Number: 2007BI014728

PATIENT
  Sex: Female

DRUGS (2)
  1. AVONEX [Suspect]
     Dosage: IM
     Route: 030
     Dates: start: 20000110, end: 20070110
  2. AVONEX [Suspect]
     Dosage: IM
     Route: 030
     Dates: start: 20070101, end: 20070101

REACTIONS (1)
  - DEATH [None]
